FAERS Safety Report 8069499-6 (Version None)
Quarter: 2012Q1

REPORT INFORMATION
  Report Type: 
  Country: None (occurrence: None)
  Receive Date: 20120119
  Receipt Date: 20120106
  Transmission Date: 20120608
  Serious: Yes (Other)
  Sender: FDA-Public Use
  Company Number: JPI-P-019172

PATIENT
  Age: 63 Year
  Sex: Female
  Weight: 31.7518 kg

DRUGS (4)
  1. LORAZEPAM [Concomitant]
  2. XYREM [Suspect]
     Indication: HEAD INJURY
     Dosage: 10 GM (5 GM, 2 IN 1 D), ORAL
     Dates: start: 20061115
  3. XYREM [Suspect]
     Indication: HEAD INJURY
     Dosage: 10 GM (5 GM, 2 IN 1 D), ORAL
     Dates: end: 20120105
  4. HYDROMORPHONE HYDROCHLORIDE [Concomitant]

REACTIONS (6)
  - SOMNOLENCE [None]
  - PAIN [None]
  - FALL [None]
  - TERMINAL STATE [None]
  - HEADACHE [None]
  - HOSPICE CARE [None]
